FAERS Safety Report 16491180 (Version 1)
Quarter: 2019Q3

REPORT INFORMATION
  Report Type: Spontaneous
  Country: US (occurrence: US)
  Receive Date: 20190627
  Receipt Date: 20190627
  Transmission Date: 20191004
  Serious: No
  Sender: FDA-Public Use
  Company Number: None

PATIENT
  Age: 72 Year
  Sex: Female
  Weight: 61.65 kg

DRUGS (8)
  1. AMANTADINE EXTENDED RELEASE CAPSULES [Suspect]
     Active Substance: AMANTADINE
     Indication: PARKINSON^S DISEASE
     Dosage: ?          QUANTITY:2 CAPSULE(S);?
     Route: 048
     Dates: start: 20190501, end: 20190531
  2. CLARITIN [Concomitant]
     Active Substance: LORATADINE
  3. POTASSIUM CHLORIDE. [Concomitant]
     Active Substance: POTASSIUM CHLORIDE
  4. BUSPIRONE [Concomitant]
     Active Substance: BUSPIRONE HYDROCHLORIDE
  5. FOSTEUM PLUS [Concomitant]
  6. SINEMET [Concomitant]
     Active Substance: CARBIDOPA\LEVODOPA
  7. FUROSEMIDE. [Concomitant]
     Active Substance: FUROSEMIDE
  8. VENELAFAXINE [Concomitant]

REACTIONS (4)
  - Decreased appetite [None]
  - Peripheral swelling [None]
  - Cellulitis [None]
  - Dry mouth [None]

NARRATIVE: CASE EVENT DATE: 20190531
